FAERS Safety Report 9102442 (Version 1)
Quarter: 2013Q1

REPORT INFORMATION
  Report Type: Spontaneous
  Country: US (occurrence: US)
  Receive Date: 20130218
  Receipt Date: 20130218
  Transmission Date: 20140127
  Serious: Yes (Death)
  Sender: FDA-Public Use
  Company Number: US-COVIDIEN/TYCO HEALTHCARE/MALLINCKRODT-T201300673

PATIENT
  Age: 56 Year
  Sex: Female

DRUGS (11)
  1. BUTALBITAL, ACETAMINOPHEN, CAFFEINE [Suspect]
     Dosage: UNK
     Route: 048
  2. CYCLIC ANTIDEPRESSANT [Suspect]
     Route: 048
  3. CITALOPRAM [Suspect]
     Route: 048
  4. LISINOPRIL [Suspect]
     Route: 048
  5. CLONAZEPAM [Suspect]
     Route: 048
  6. GABAPENTIN [Suspect]
     Route: 048
  7. CYCLOBENZAPRINE [Suspect]
     Route: 048
  8. ZOLPIDEM [Suspect]
     Route: 048
  9. SUMATRIPTAN [Suspect]
     Route: 048
  10. DRUG, UNKNOWN [Suspect]
     Route: 048
  11. NAPROXEN [Suspect]
     Route: 048

REACTIONS (1)
  - Completed suicide [Fatal]
